FAERS Safety Report 8835059 (Version 1)
Quarter: 2012Q4

REPORT INFORMATION
  Report Type: Spontaneous
  Country: US (occurrence: None)
  Receive Date: 20120924
  Receipt Date: 20120924
  Transmission Date: 20130627
  Serious: Yes (Other)
  Sender: FDA-Public Use
  Company Number: 2012MZ000380

PATIENT
  Age: 59 Year
  Sex: Female

DRUGS (9)
  1. XEOMIN [Suspect]
  2. XEOMIN [Suspect]
  3. FLUOXETINE [Concomitant]
  4. AMLODIPINE [Concomitant]
  5. TRIFLUOPERAZINE [Concomitant]
  6. PRAVASTATIN [Concomitant]
  7. OMEPRAZOLE [Concomitant]
  8. MULTIVITAMINS [Concomitant]
  9. FISH OIL [Concomitant]

REACTIONS (18)
  - Fatigue [None]
  - Red blood cell sedimentation rate increased [None]
  - White matter lesion [None]
  - Pyrexia [None]
  - Lethargy [None]
  - Disorientation [None]
  - Headache [None]
  - Vision blurred [None]
  - Apraxia [None]
  - Dysarthria [None]
  - Intention tremor [None]
  - Asthenia [None]
  - Ataxia [None]
  - Urinary incontinence [None]
  - Hypoventilation [None]
  - Somnolence [None]
  - Confusional state [None]
  - Exposure to toxic agent [None]
